FAERS Safety Report 19242794 (Version 1)
Quarter: 2021Q2

REPORT INFORMATION
  Report Type: Spontaneous
  Country: NL (occurrence: NL)
  Receive Date: 20210511
  Receipt Date: 20210511
  Transmission Date: 20210717
  Serious: Yes (Death, Hospitalization)
  Sender: FDA-Public Use
  Company Number: NL-FRESENIUS KABI-FK202104639

PATIENT
  Sex: Male
  Weight: 80 kg

DRUGS (3)
  1. FLUOROURACIL. [Suspect]
     Active Substance: FLUOROURACIL
     Indication: PANCREATIC CARCINOMA
     Dosage: 2800MG/M2 (3 DAYS, FOLLOWED BY 11 DAYS NOT, THEN AGAIN 3 DAYS IN THE CONTEXT OF FOLFIRINOX TREATMENT
     Route: 065
     Dates: start: 20200205
  2. OXALIPLATIN (MANUFACTURER UNKNOWN) [Suspect]
     Active Substance: OXALIPLATIN
     Indication: PANCREATIC CARCINOMA
     Dosage: 63.75MG/M2 (ONCE EVERY 2 WEEKS WITHIN CONTEXT OF FOLFIRINOX TREATMENTS)
     Route: 065
     Dates: start: 20200205
  3. IRINOTECAN (MANUFACTURER UNKNOWN) [Suspect]
     Active Substance: IRINOTECAN
     Indication: PANCREATIC CARCINOMA
     Dosage: 180MG/M2 (ONCE EVERY 2 WEEKS WITHIN CONTEXT OF FOLFIRINOX TREATMENTS)
     Route: 065
     Dates: start: 20200205

REACTIONS (1)
  - Pneumonitis [Fatal]
